FAERS Safety Report 20599885 (Version 1)
Quarter: 2022Q1

REPORT INFORMATION
  Report Type: Report from Study
  Country: US (occurrence: US)
  Receive Date: 20220316
  Receipt Date: 20220316
  Transmission Date: 20220424
  Serious: Yes (Hospitalization, Other)
  Sender: FDA-Public Use
  Company Number: US-ABBVIE-22K-163-4303459-00

PATIENT
  Age: 72 Year
  Sex: Male
  Weight: 64.014 kg

DRUGS (13)
  1. DUOPA [Suspect]
     Active Substance: CARBIDOPA\LEVODOPA
     Indication: Product used for unknown indication
     Route: 050
     Dates: start: 20160803
  2. DUOPA [Suspect]
     Active Substance: CARBIDOPA\LEVODOPA
     Route: 050
  3. DUOPA [Suspect]
     Active Substance: CARBIDOPA\LEVODOPA
     Route: 050
  4. CLONAZEPAM [Concomitant]
     Active Substance: CLONAZEPAM
     Indication: Sleep disorder
  5. GABAPENTIN [Concomitant]
     Active Substance: GABAPENTIN
     Indication: Sleep disorder
  6. CLEANSEMORE [Concomitant]
     Indication: Constipation
  7. DONEPEZIL [Concomitant]
     Active Substance: DONEPEZIL
     Indication: Parkinson^s disease
  8. ENTACAPONE [Concomitant]
     Active Substance: ENTACAPONE
     Indication: Parkinson^s disease
  9. MELATONIN [Concomitant]
     Active Substance: MELATONIN
     Indication: Sleep disorder
  10. MIDODRINE [Concomitant]
     Active Substance: MIDODRINE
     Indication: Blood pressure management
  11. MYRBETRIQ [Concomitant]
     Active Substance: MIRABEGRON
     Indication: Incontinence
  12. PANTOPRAZOLE [Concomitant]
     Active Substance: PANTOPRAZOLE
     Indication: Dyspepsia
  13. ROPINIROLE [Concomitant]
     Active Substance: ROPINIROLE
     Indication: Parkinson^s disease

REACTIONS (12)
  - Fall [Recovered/Resolved]
  - Device breakage [Unknown]
  - Liver abscess [Recovered/Resolved]
  - Escherichia sepsis [Recovered/Resolved]
  - Sepsis [Recovered/Resolved]
  - Urinary tract infection staphylococcal [Recovered/Resolved]
  - Hospitalisation [Unknown]
  - Asthenia [Recovered/Resolved]
  - Device dislocation [Recovered/Resolved]
  - Stoma site extravasation [Recovered/Resolved]
  - Stoma complication [Recovered/Resolved]
  - Stoma creation [Recovered/Resolved]

NARRATIVE: CASE EVENT DATE: 20211001
